FAERS Safety Report 5679194-6 (Version None)
Quarter: 2008Q1

REPORT INFORMATION
  Report Type: 
  Country: None (occurrence: None)
  Receive Date: 20080325
  Receipt Date: 20080320
  Transmission Date: 20080703
  Serious: Yes (Death, Other)
  Sender: FDA-Public Use
  Company Number: US-ASTRAZENECA-2007UW13171

PATIENT
  Age: 29493 Day
  Sex: Female
  Weight: 63.6 kg

DRUGS (2)
  1. SEROQUEL [Suspect]
     Indication: BIPOLAR DISORDER
     Dosage: 50-100 MG
     Route: 048
     Dates: start: 20050601
  2. LITHIUM CARBONATE [Concomitant]

REACTIONS (3)
  - DEATH [None]
  - DIABETES MELLITUS [None]
  - DIABETIC COMA [None]
